FAERS Safety Report 26087499 (Version 1)
Quarter: 2025Q4

REPORT INFORMATION
  Report Type: Spontaneous
  Country: EU (occurrence: EU)
  Receive Date: 20251125
  Receipt Date: 20251125
  Transmission Date: 20260118
  Serious: Yes (Disabling)
  Sender: MYLAN
  Company Number: EU-MYLANLABS-2025M1099744

PATIENT
  Age: 80 Year
  Sex: Female

DRUGS (8)
  1. LYRICA [Suspect]
     Active Substance: PREGABALIN
     Indication: Pruritus
     Dosage: 1 DOSAGE FORM, BID (TWICE DAILY, ONE IN THE MORNING AND ONE AT NIGHT)
     Route: 065
     Dates: start: 20251114
  2. LYRICA [Suspect]
     Active Substance: PREGABALIN
     Indication: Pain of skin
     Dosage: 1 DOSAGE FORM, BID (TWICE DAILY, ONE IN THE MORNING AND ONE AT NIGHT)
     Dates: start: 20251114
  3. LYRICA [Suspect]
     Active Substance: PREGABALIN
     Dosage: 1 DOSAGE FORM, BID (TWICE DAILY, ONE IN THE MORNING AND ONE AT NIGHT)
     Dates: start: 20251114
  4. LYRICA [Suspect]
     Active Substance: PREGABALIN
     Dosage: 1 DOSAGE FORM, BID (TWICE DAILY, ONE IN THE MORNING AND ONE AT NIGHT)
     Route: 065
     Dates: start: 20251114
  5. LYRICA [Suspect]
     Active Substance: PREGABALIN
     Dosage: 1 DOSAGE FORM, QD (1 DOSAGE)
     Route: 065
  6. LYRICA [Suspect]
     Active Substance: PREGABALIN
     Dosage: 1 DOSAGE FORM, QD (1 DOSAGE)
  7. LYRICA [Suspect]
     Active Substance: PREGABALIN
     Dosage: 1 DOSAGE FORM, QD (1 DOSAGE)
  8. LYRICA [Suspect]
     Active Substance: PREGABALIN
     Dosage: 1 DOSAGE FORM, QD (1 DOSAGE)
     Route: 065

REACTIONS (6)
  - Dysstasia [Recovering/Resolving]
  - Visual impairment [Recovering/Resolving]
  - Gait disturbance [Recovering/Resolving]
  - Fall [Recovered/Resolved]
  - Hypersensitivity [Not Recovered/Not Resolved]
  - Product label issue [Unknown]
